FAERS Safety Report 23132215 (Version 2)
Quarter: 2024Q1

REPORT INFORMATION
  Report Type: Report from Study
  Country: US (occurrence: US)
  Receive Date: 20231101
  Receipt Date: 20240312
  Transmission Date: 20240410
  Serious: Yes (Hospitalization)
  Sender: FDA-Public Use
  Company Number: US-ABBVIE-5473838

PATIENT
  Sex: Female

DRUGS (1)
  1. HUMIRA [Suspect]
     Active Substance: ADALIMUMAB
     Indication: Hidradenitis
     Dosage: FORM STRENGTH: 40 MG?CITRATE FREE
     Route: 058
     Dates: start: 20230809

REACTIONS (3)
  - Intervertebral disc protrusion [Recovering/Resolving]
  - Radiculopathy [Unknown]
  - Sciatic nerve neuropathy [Unknown]

NARRATIVE: CASE EVENT DATE: 20230101
